FAERS Safety Report 20506779 (Version 1)
Quarter: 2022Q1

REPORT INFORMATION
  Report Type: Spontaneous
  Country: US (occurrence: None)
  Receive Date: 20220222
  Receipt Date: 20220222
  Transmission Date: 20220424
  Serious: Yes (Other)
  Sender: FDA-Public Use
  Company Number: None

PATIENT
  Age: 10 Week
  Sex: Male
  Weight: 3.1 kg

DRUGS (4)
  1. LIDOCAINE\PRILOCAINE [Suspect]
     Active Substance: LIDOCAINE\PRILOCAINE
     Indication: Postoperative analgesia
     Dosage: OTHER FREQUENCY : ONCE;?
     Route: 061
     Dates: start: 20220221, end: 20220221
  2. LIDOCAINE\PRILOCAINE [Suspect]
     Active Substance: LIDOCAINE\PRILOCAINE
     Indication: Circumcision
  3. VITAMINS [Concomitant]
     Active Substance: VITAMINS
     Dates: start: 20220218, end: 20220222
  4. PALIVIZUMAB [Concomitant]
     Active Substance: PALIVIZUMAB
     Dates: start: 20220221, end: 20220221

REACTIONS (2)
  - Application site swelling [None]
  - Application site erythema [None]

NARRATIVE: CASE EVENT DATE: 20220221
